FAERS Safety Report 5358315-9 (Version None)
Quarter: 2007Q2

REPORT INFORMATION
  Report Type: 
  Country: None (occurrence: None)
  Receive Date: 20070614
  Receipt Date: 20070614
  Transmission Date: 20071010
  Serious: Yes (Hospitalization)
  Sender: FDA-Public Use
  Company Number: None

PATIENT
  Sex: Female
  Weight: 120 kg

DRUGS (17)
  1. CYCLOPHOSPHAMIDE [Suspect]
     Dosage: 1320 MG
  2. DOXORUBICIN HYDROCHLORIDE [Suspect]
     Dosage: 132 MG
  3. ACTOS [Concomitant]
  4. ASPIRIN [Concomitant]
  5. BENICAR-HYDROCHLORTHIAZIDE [Concomitant]
  6. DECADRON [Concomitant]
  7. FOSAMAX [Concomitant]
  8. GLIPIZIDE [Concomitant]
  9. LORAZEPAM [Concomitant]
  10. LYRICA [Concomitant]
  11. METFORMIN HCL [Concomitant]
  12. PERCOCET [Concomitant]
  13. REGLAN [Concomitant]
  14. TRAMADOL HCL [Concomitant]
  15. WELLBUTRIN XL [Concomitant]
  16. XANAX [Concomitant]
  17. ZOCOR [Concomitant]

REACTIONS (6)
  - COUGH [None]
  - FEBRILE NEUTROPENIA [None]
  - NAUSEA [None]
  - OTITIS MEDIA [None]
  - THROAT IRRITATION [None]
  - WHITE BLOOD CELL COUNT DECREASED [None]
